FAERS Safety Report 5428793-5 (Version None)
Quarter: 2007Q3

REPORT INFORMATION
  Report Type: 
  Country: None (occurrence: None)
  Receive Date: 20070829
  Receipt Date: 20070116
  Transmission Date: 20080115
  Serious: No
  Sender: FDA-Public Use
  Company Number: A0624822A

PATIENT
  Age: 34 Year
  Sex: Male

DRUGS (3)
  1. ZOVIRAX [Suspect]
     Indication: DRUG USE FOR UNKNOWN INDICATION
     Route: 061
     Dates: start: 20061020, end: 20061021
  2. KEFLEX [Concomitant]
  3. DOXYCYCLINE [Concomitant]

REACTIONS (2)
  - DRUG INEFFECTIVE [None]
  - PHARMACEUTICAL PRODUCT COMPLAINT [None]
